FAERS Safety Report 15786814 (Version 2)
Quarter: 2019Q1

REPORT INFORMATION
  Report Type: Spontaneous
  Country: GB (occurrence: GB)
  Receive Date: 20190103
  Receipt Date: 20190111
  Transmission Date: 20190417
  Serious: Yes (Hospitalization)
  Sender: FDA-Public Use
  Company Number: GB-MYLANLABS-2018M1097392

PATIENT
  Age: 63 Year
  Sex: Female

DRUGS (3)
  1. CLOZARIL [Suspect]
     Active Substance: CLOZAPINE
     Indication: SCHIZOPHRENIA
     Dosage: UNK
     Route: 048
     Dates: start: 20110322, end: 2018
  2. CLOZARIL [Suspect]
     Active Substance: CLOZAPINE
     Dosage: 100 MILLIGRAM, AM
     Route: 048
  3. CLOZARIL [Suspect]
     Active Substance: CLOZAPINE
     Dosage: 125 MILLIGRAM, PM
     Route: 048

REACTIONS (6)
  - Incorrect dose administered [Unknown]
  - Lower respiratory tract infection [Unknown]
  - Blood creatinine decreased [Unknown]
  - Malaise [Recovering/Resolving]
  - Chronic obstructive pulmonary disease [Unknown]
  - Product dispensing error [Unknown]

NARRATIVE: CASE EVENT DATE: 2018
